FAERS Safety Report 10142913 (Version 2)
Quarter: 2014Q2

REPORT INFORMATION
  Report Type: Spontaneous
  Country: IE (occurrence: IE)
  Receive Date: 20140430
  Receipt Date: 20140530
  Transmission Date: 20141212
  Serious: Yes (Hospitalization, Other)
  Sender: FDA-Public Use
  Company Number: IE-ROCHE-1390200

PATIENT
  Age: 55 Year
  Sex: Male
  Weight: 85 kg

DRUGS (3)
  1. TAMIFLU [Suspect]
     Indication: INFLUENZA
     Route: 048
     Dates: start: 20140226, end: 20140228
  2. CLARITHROMYCIN [Concomitant]
  3. VANCOMYCIN [Concomitant]

REACTIONS (2)
  - Generalised tonic-clonic seizure [Recovered/Resolved]
  - Pyrexia [Unknown]
